FAERS Safety Report 7487697-7 (Version None)
Quarter: 2011Q2

REPORT INFORMATION
  Report Type: 
  Country: None (occurrence: None)
  Receive Date: 20110518
  Receipt Date: 20110509
  Transmission Date: 20111010
  Serious: Yes (Death, Life-Threatening, Hospitalization, Other)
  Sender: FDA-Public Use
  Company Number: JP-BAYER-201011676BYL

PATIENT
  Age: 69 Year
  Sex: Female
  Weight: 71 kg

DRUGS (9)
  1. LASIX [Concomitant]
     Dosage: DAILY DOSE 20 MG
     Route: 048
     Dates: end: 20091208
  2. GLYCYRON [Concomitant]
     Dosage: DAILY DOSE 3 DF
     Route: 048
  3. URSO 250 [Concomitant]
     Dosage: DAILY DOSE 300 MG
     Route: 048
  4. FALKAMIN [Concomitant]
     Dosage: 2 DF, UNK
     Route: 048
  5. NEXAVAR [Suspect]
     Dosage: 400 MG, QOD
     Route: 048
     Dates: start: 20091121, end: 20091128
  6. LIVACT [Concomitant]
     Dosage: SINCE BEFORE ADMINISTRATION
     Route: 048
  7. NEXAVAR [Suspect]
     Indication: HEPATIC NEOPLASM MALIGNANT
     Dosage: DAILY DOSE 400 MG
     Route: 048
     Dates: start: 20091029, end: 20091116
  8. ALDACTONE [Concomitant]
     Dosage: 50 MG, UNK
     Route: 048
     Dates: end: 20091208
  9. UREPEARL [Concomitant]
     Indication: PROPHYLAXIS
     Dosage: SINCE BEFORE ADMINISTRATION
     Route: 061

REACTIONS (8)
  - HEPATIC FUNCTION ABNORMAL [None]
  - HEPATIC NEOPLASM MALIGNANT [None]
  - ASCITES [None]
  - HYPERURICAEMIA [None]
  - RASH [None]
  - RENAL IMPAIRMENT [None]
  - PALMAR-PLANTAR ERYTHRODYSAESTHESIA SYNDROME [None]
  - C-REACTIVE PROTEIN INCREASED [None]
